FAERS Safety Report 6993590-6 (Version None)
Quarter: 2010Q3

REPORT INFORMATION
  Report Type: 
  Country: None (occurrence: None)
  Receive Date: 20100917
  Receipt Date: 20100909
  Transmission Date: 20110219
  Serious: Yes (Hospitalization)
  Sender: FDA-Public Use
  Company Number: PHHO2010GB13746

PATIENT
  Sex: Male

DRUGS (1)
  1. DICLOFENAC SODIUM [Suspect]

REACTIONS (7)
  - ANAEMIA HAEMOLYTIC AUTOIMMUNE [None]
  - ASTHMA [None]
  - CHRONIC LYMPHOCYTIC LEUKAEMIA [None]
  - DYSPNOEA [None]
  - ESSENTIAL HYPERTENSION [None]
  - NAUSEA [None]
  - VOMITING [None]
